FAERS Safety Report 10096497 (Version 2)
Quarter: 2014Q2

REPORT INFORMATION
  Report Type: Spontaneous
  Country: US (occurrence: US)
  Receive Date: 20140422
  Receipt Date: 20140422
  Transmission Date: 20141212
  Serious: No
  Sender: FDA-Public Use
  Company Number: US-GILEAD-2012-0062812

PATIENT
  Sex: Female

DRUGS (5)
  1. LETAIRIS [Suspect]
     Indication: COR PULMONALE CHRONIC
     Dosage: 10 MG, UNK
     Route: 048
     Dates: start: 20110320
  2. BUMEX [Suspect]
  3. REMODULIN [Concomitant]
  4. REVATIO [Concomitant]
  5. POTASSIUM [Concomitant]

REACTIONS (4)
  - Skin discolouration [Unknown]
  - Swelling [Unknown]
  - Oedema [Unknown]
  - Dizziness [Unknown]
